FAERS Safety Report 9880719 (Version 1)
Quarter: 2014Q1

REPORT INFORMATION
  Report Type: Spontaneous
  Country: IN (occurrence: IN)
  Receive Date: 20140207
  Receipt Date: 20140207
  Transmission Date: 20141002
  Serious: Yes (Other)
  Sender: FDA-Public Use
  Company Number: IN-ELI_LILLY_AND_COMPANY-IN201401010132

PATIENT
  Sex: Male

DRUGS (2)
  1. TADALAFIL [Suspect]
     Indication: BENIGN PROSTATIC HYPERPLASIA
     Dosage: 10 MG, QD
     Route: 065
  2. TADALAFIL [Suspect]
     Indication: LOWER URINARY TRACT SYMPTOMS

REACTIONS (1)
  - Intraocular pressure increased [Unknown]
